FAERS Safety Report 7277379-9 (Version None)
Quarter: 2011Q1

REPORT INFORMATION
  Report Type: 
  Country: None (occurrence: None)
  Receive Date: 20110207
  Receipt Date: 20110128
  Transmission Date: 20110831
  Serious: Yes (Hospitalization)
  Sender: FDA-Public Use
  Company Number: US-US-EMD SERONO, INC.-7022256

PATIENT
  Sex: Female

DRUGS (5)
  1. EFFEXOR [Concomitant]
     Indication: DEPRESSION
     Dates: end: 20101101
  2. REBIF [Suspect]
     Indication: MULTIPLE SCLEROSIS
     Route: 058
     Dates: start: 20091203, end: 20101101
  3. MYLANTA [Concomitant]
     Indication: ULCER
     Dates: start: 19910101
  4. CYMBALTA [Concomitant]
     Indication: DEPRESSION
     Dates: start: 20101101
  5. CYMBALTA [Concomitant]
     Indication: PAIN

REACTIONS (7)
  - VOMITING [None]
  - PYREXIA [None]
  - ABNORMAL BEHAVIOUR [None]
  - PULMONARY EMBOLISM [None]
  - CONSTIPATION [None]
  - MULTIPLE SCLEROSIS RELAPSE [None]
  - OESOPHAGITIS ULCERATIVE [None]
